FAERS Safety Report 5586222-5 (Version None)
Quarter: 2008Q1

REPORT INFORMATION
  Report Type: 
  Country: None (occurrence: None)
  Receive Date: 20080107
  Receipt Date: 20071221
  Transmission Date: 20080703
  Serious: Yes (Hospitalization)
  Sender: FDA-Public Use
  Company Number: 2007002278

PATIENT
  Age: 77 Year
  Sex: Male

DRUGS (1)
  1. ERLOTINIB (ERLOTINIB HC1) (TABLET) (ERLOTINIB HC1) [Suspect]
     Indication: PROSTATE CANCER
     Dosage: 150 MG, QD) ORAL
     Route: 048
     Dates: start: 20070807

REACTIONS (2)
  - DEHYDRATION [None]
  - PNEUMOCYSTIS JIROVECI PNEUMONIA [None]
